FAERS Safety Report 6848399-0 (Version None)
Quarter: 2010Q3

REPORT INFORMATION
  Report Type: 
  Country: None (occurrence: None)
  Receive Date: 20100716
  Receipt Date: 20100708
  Transmission Date: 20110219
  Serious: Yes (Hospitalization)
  Sender: FDA-Public Use
  Company Number: JP-ROCHE-715183

PATIENT
  Age: 70 Year
  Sex: Male

DRUGS (5)
  1. AVASTIN [Suspect]
     Indication: RECTAL CANCER
     Dosage: DOSAGE IS UNCERTAIN
     Route: 041
  2. FLUOROURACIL [Suspect]
     Indication: RECTAL CANCER
     Dosage: ROUTE: INTRAVENOUS BOLUS; DOSAGE IS UNCERTAIN.
     Route: 042
  3. FLUOROURACIL [Suspect]
     Dosage: ROUTE: INTRAVENOUS DRIP; DOSAGE IS UNCERTAIN
     Route: 042
  4. CALCIUM LEVOFOLINATE [Suspect]
     Indication: RECTAL CANCER
     Dosage: DRUG REPORTED AS LEVOFOLINATE CALCIUM; DOSAGE IS UNCERTAIN
     Route: 041
  5. IRINOTECAN HYDROCHLORIDE [Suspect]
     Indication: RECTAL CANCER
     Dosage: DOSAGE IS UNCERTAIN
     Route: 041

REACTIONS (1)
  - NECROTISING FASCIITIS [None]
